FAERS Safety Report 12519957 (Version 1)
Quarter: 2016Q3

REPORT INFORMATION
  Report Type: Spontaneous
  Country: FR (occurrence: FR)
  Receive Date: 20160701
  Receipt Date: 20160701
  Transmission Date: 20161109
  Serious: Yes (Other)
  Sender: FDA-Public Use
  Company Number: FR-009507513-1512FRA009261

PATIENT
  Age: 67 Year
  Sex: Female

DRUGS (1)
  1. KEYTRUDA [Suspect]
     Active Substance: PEMBROLIZUMAB
     Indication: METASTATIC MALIGNANT MELANOMA
     Dosage: UNK, CYCLICAL
     Route: 042
     Dates: start: 20150204, end: 20151019

REACTIONS (2)
  - Uveitis [Not Recovered/Not Resolved]
  - Ocular sarcoidosis [Not Recovered/Not Resolved]

NARRATIVE: CASE EVENT DATE: 2015
